FAERS Safety Report 23379226 (Version 1)
Quarter: 2024Q1

REPORT INFORMATION
  Report Type: Spontaneous
  Country: US (occurrence: None)
  Receive Date: 20240107
  Receipt Date: 20240107
  Transmission Date: 20240410
  Serious: Yes (Other)
  Sender: FDA-Public Use
  Company Number: None

PATIENT
  Age: 29 Year
  Sex: Female
  Weight: 67.5 kg

DRUGS (3)
  1. TARGET ANTIFUNGAL [Suspect]
     Active Substance: TOLNAFTATE
     Indication: Tinea pedis
     Dosage: FREQUENCY : TWICE A DAY;?
     Route: 061
     Dates: start: 20240106
  2. SERTRALINE [Concomitant]
     Active Substance: SERTRALINE HYDROCHLORIDE
  3. Prenatal Vitamins one a day [Concomitant]

REACTIONS (4)
  - Dyspnoea [None]
  - Dizziness [None]
  - Nausea [None]
  - Chest discomfort [None]

NARRATIVE: CASE EVENT DATE: 20240106
